FAERS Safety Report 5018295-2 (Version None)
Quarter: 2006Q2

REPORT INFORMATION
  Report Type: 
  Country: None (occurrence: None)
  Receive Date: 20060530
  Receipt Date: 20060517
  Transmission Date: 20061013
  Serious: Yes (Other)
  Sender: FDA-Public Use
  Company Number: 2006065785

PATIENT
  Sex: Female
  Weight: 81.6475 kg

DRUGS (4)
  1. ZOLOFT [Suspect]
     Indication: ANXIETY
     Dosage: 100 MG (100 MG, QD: EVERY DAY)
  2. ZOLOFT [Suspect]
     Indication: DEPRESSION
     Dosage: 100 MG (100 MG, QD: EVERY DAY)
  3. ZOLOFT [Suspect]
     Indication: PANIC DISORDER
     Dosage: 100 MG (100 MG, QD: EVERY DAY)
  4. KLONOPIN [Concomitant]

REACTIONS (10)
  - ANXIETY [None]
  - CHEST DISCOMFORT [None]
  - DEPRESSION [None]
  - DIZZINESS [None]
  - FEELING ABNORMAL [None]
  - HEADACHE [None]
  - HYPOAESTHESIA [None]
  - PARAESTHESIA [None]
  - PRURITUS [None]
  - TREATMENT NONCOMPLIANCE [None]
